FAERS Safety Report 14139538 (Version 1)
Quarter: 2017Q4

REPORT INFORMATION
  Report Type: Other
  Country: DE (occurrence: DE)
  Receive Date: 20171029
  Receipt Date: 20171029
  Transmission Date: 20180321
  Serious: Yes (Hospitalization, Other)
  Sender: FDA-Public Use
  Company Number: DE-DEXPHARM-20171483

PATIENT
  Age: 83 Year
  Sex: Female

DRUGS (7)
  1. COLECALCIFEROL [Concomitant]
     Active Substance: CHOLECALCIFEROL
     Dates: start: 2006
  2. CALCIUM [Concomitant]
     Active Substance: CALCIUM
     Dates: start: 2006
  3. DICLOFENAC [Concomitant]
     Active Substance: DICLOFENAC
  4. MAGNESIUM [Concomitant]
     Active Substance: MAGNESIUM
  5. OMEPRAZOLE. [Suspect]
     Active Substance: OMEPRAZOLE
  6. VENOSTAS [Concomitant]
  7. ALENDRONIC ACID [Suspect]
     Active Substance: ALENDRONIC ACID
     Dates: start: 2006

REACTIONS (1)
  - Hip fracture [Recovered/Resolved]
